FAERS Safety Report 23329680 (Version 1)
Quarter: 2023Q4

REPORT INFORMATION
  Report Type: Spontaneous
  Country: BE (occurrence: BE)
  Receive Date: 20231222
  Receipt Date: 20231222
  Transmission Date: 20240109
  Serious: Yes (Other)
  Sender: FDA-Public Use
  Company Number: BE-RK PHARMA, INC-20231200068

PATIENT
  Age: 70 Year
  Sex: Male

DRUGS (4)
  1. CARBAMAZEPINE [Interacting]
     Active Substance: CARBAMAZEPINE
     Indication: Epilepsy
  2. TICAGRELOR [Interacting]
     Active Substance: TICAGRELOR
     Indication: Electrocardiogram ST segment elevation
     Dosage: 180 MILLIGRAM
  3. TICAGRELOR [Interacting]
     Active Substance: TICAGRELOR
     Dosage: 180 MILLIGRAM, BID
  4. ASPIRIN [Concomitant]
     Active Substance: ASPIRIN
     Dosage: 100 MILLIGRAM, QD

REACTIONS (2)
  - Vascular stent thrombosis [Recovered/Resolved]
  - Drug interaction [Recovered/Resolved]
